FAERS Safety Report 4268277-3 (Version None)
Quarter: 2004Q1

REPORT INFORMATION
  Report Type: 
  Country: None (occurrence: None)
  Receive Date: 20040108
  Receipt Date: 20031224
  Transmission Date: 20041129
  Serious: Yes (Life-Threatening, Other)
  Sender: FDA-Public Use
  Company Number: SA-JNJFOC-20031204879

PATIENT
  Age: 25 Year
  Sex: Female
  Weight: 40 kg

DRUGS (4)
  1. REMICADE [Suspect]
     Indication: RHEUMATOID ARTHRITIS
     Dosage: 100 MG, INTRAVENOUS
     Route: 042
     Dates: start: 20031011, end: 20031213
  2. BRUFEN (IBUPROFEN) TABLETS [Concomitant]
  3. METHOTREXATE (METHOTREXATE) CAPSULES [Concomitant]
  4. LANZOPRAZOLE (LANSOPRAZOLE) CAPSULES [Concomitant]

REACTIONS (1)
  - ANAPHYLACTIC REACTION [None]
